FAERS Safety Report 6314766-7 (Version None)
Quarter: 2009Q3

REPORT INFORMATION
  Report Type: 
  Country: None (occurrence: None)
  Receive Date: 20090819
  Receipt Date: 20090814
  Transmission Date: 20100115
  Serious: Yes (Hospitalization)
  Sender: FDA-Public Use
  Company Number: US-ASTRAZENECA-2009SE08105

PATIENT
  Age: 50 Year
  Sex: Female

DRUGS (3)
  1. NEXIUM [Suspect]
     Route: 048
     Dates: start: 20020601
  2. METOPROLOL [Concomitant]
  3. SPIROLACTONE [Concomitant]

REACTIONS (4)
  - CIRCULATORY COLLAPSE [None]
  - MUSCLE INJURY [None]
  - PARALYSIS [None]
  - WEST NILE VIRUS TEST POSITIVE [None]
